FAERS Safety Report 5531486-7 (Version None)
Quarter: 2007Q4

REPORT INFORMATION
  Report Type: 
  Country: None (occurrence: None)
  Receive Date: 20071203
  Receipt Date: 20071126
  Transmission Date: 20080405
  Serious: Yes (Hospitalization)
  Sender: FDA-Public Use
  Company Number: JP-TYCO HEALTHCARE/MALLINCKRODT-T200701445

PATIENT

DRUGS (5)
  1. ANAFRANIL CAP [Suspect]
     Indication: OBSESSIVE-COMPULSIVE DISORDER
     Dosage: 50 MG, QD
     Dates: end: 20050101
  2. TEPRENONE [Concomitant]
     Indication: OBSESSIVE-COMPULSIVE DISORDER
     Dosage: 150 MG, QD
  3. VALPROATE SODIUM [Concomitant]
     Indication: OBSESSIVE-COMPULSIVE DISORDER
     Dosage: 600 MG, QD
  4. CARBAMAZEPINE [Concomitant]
     Indication: OBSESSIVE-COMPULSIVE DISORDER
  5. PEROSPIRONE HYDROCHLORIDE [Concomitant]
     Dosage: 8 MG, QD
     Dates: end: 20050101

REACTIONS (2)
  - NEPHRITIS INTERSTITIAL [None]
  - RENAL FAILURE ACUTE [None]
